FAERS Safety Report 15745570 (Version 1)
Quarter: 2018Q4

REPORT INFORMATION
  Report Type: Spontaneous
  Country: US (occurrence: US)
  Receive Date: 20181214
  Receipt Date: 20181214
  Transmission Date: 20190205
  Serious: Yes (Hospitalization)
  Sender: FDA-Public Use
  Company Number: None

PATIENT
  Age: 57 Year
  Sex: Female

DRUGS (34)
  1. CLOPIDOGREL [Concomitant]
     Active Substance: CLOPIDOGREL BISULFATE
  2. PROVENTIL HFA [Concomitant]
     Active Substance: ALBUTEROL SULFATE
  3. PROPRANOLOL [Concomitant]
     Active Substance: PROPRANOLOL HYDROCHLORIDE
  4. OMEPRAZOLE. [Concomitant]
     Active Substance: OMEPRAZOLE
  5. SENNA [Concomitant]
     Active Substance: SENNA LEAF\SENNOSIDES\SENNOSIDES A AND B
  6. TEMAZEPAM. [Concomitant]
     Active Substance: TEMAZEPAM
  7. LAMOTRIGINE. [Concomitant]
     Active Substance: LAMOTRIGINE
  8. VITAMIN D3 [Concomitant]
     Active Substance: CHOLECALCIFEROL
  9. LEVOTHYROXIN [Concomitant]
     Active Substance: LEVOTHYROXINE
  10. IMIRTAZAPNE [Concomitant]
  11. VITAMIN D3 [Concomitant]
     Active Substance: CHOLECALCIFEROL
  12. LAMOTRIGIVE [Concomitant]
  13. RIBAVIRIN. [Suspect]
     Active Substance: RIBAVIRIN
     Indication: HEPATITIS VIRAL
     Route: 048
     Dates: start: 20181121
  14. LOSARTAN POT [Concomitant]
     Active Substance: LOSARTAN POTASSIUM
  15. ONDANSETRON [Concomitant]
     Active Substance: ONDANSETRON
  16. LYRICA [Concomitant]
     Active Substance: PREGABALIN
  17. TOPIRAMATE. [Concomitant]
     Active Substance: TOPIRAMATE
  18. VITAMIN D3 [Concomitant]
     Active Substance: CHOLECALCIFEROL
  19. TEMAZEPAM. [Concomitant]
     Active Substance: TEMAZEPAM
  20. ADVAIR DISKU AER [Concomitant]
  21. NITROGLYCERN SUB [Concomitant]
  22. IBUPROPIN HCL [Concomitant]
  23. COMIVENT [Concomitant]
  24. PREMARIN [Concomitant]
     Active Substance: ESTROGENS, CONJUGATED
  25. FUROSEMIDE. [Concomitant]
     Active Substance: FUROSEMIDE
  26. OMEPRAZOLE. [Concomitant]
     Active Substance: OMEPRAZOLE
  27. PROPRANOLOL [Concomitant]
     Active Substance: PROPRANOLOL HYDROCHLORIDE
  28. HYDROCO/APAP [Concomitant]
     Active Substance: ACETAMINOPHEN\HYDROCODONE
  29. EPCLUSA [Suspect]
     Active Substance: SOFOSBUVIR\VELPATASVIR
     Indication: CHRONIC HEPATITIS C
     Dosage: 400/100 MG QD PO
     Dates: start: 20181121
  30. VITAMIN D [Concomitant]
     Active Substance: CHOLECALCIFEROL
  31. PRAVASTATIN. [Concomitant]
     Active Substance: PRAVASTATIN
  32. PROPRANOLOL [Concomitant]
     Active Substance: PROPRANOLOL HYDROCHLORIDE
  33. METOCLOPRAM [Concomitant]
     Active Substance: METOCLOPRAMIDE
  34. BENZONATATE. [Concomitant]
     Active Substance: BENZONATATE

REACTIONS (4)
  - Nausea [None]
  - Weight decreased [None]
  - Decreased appetite [None]
  - Dehydration [None]

NARRATIVE: CASE EVENT DATE: 20181213
